FAERS Safety Report 7675678-X (Version None)
Quarter: 2011Q3

REPORT INFORMATION
  Report Type: 
  Country: None (occurrence: None)
  Receive Date: 20110810
  Receipt Date: 20110803
  Transmission Date: 20111222
  Serious: Yes (Death, Hospitalization)
  Sender: FDA-Public Use
  Company Number: US-CELGENEUS-163-21880-11030617

PATIENT
  Sex: Female

DRUGS (17)
  1. GLIPIZIDE [Concomitant]
     Route: 065
  2. ADALAT [Concomitant]
     Route: 065
  3. ZOSYN [Concomitant]
     Route: 065
     Dates: start: 20110301
  4. LEVAQUIN [Concomitant]
     Route: 065
     Dates: start: 20110301
  5. SODIUM BICARBONATE [Concomitant]
     Dosage: 5 AMPS
     Route: 065
     Dates: start: 20110301
  6. MIRACLE MOUTHWASH [Concomitant]
     Route: 065
  7. VELCADE [Concomitant]
     Indication: MULTIPLE MYELOMA
     Route: 065
     Dates: start: 20110203, end: 20110301
  8. REVLIMID [Suspect]
     Indication: MULTIPLE MYELOMA
     Dosage: 25 MILLIGRAM
     Route: 048
     Dates: start: 20110203, end: 20110301
  9. CALCIUM CARBONATE [Concomitant]
     Dosage: 2 GRAM
     Route: 065
     Dates: start: 20110301
  10. DEXAMETHASONE [Concomitant]
     Indication: MULTIPLE MYELOMA
     Route: 065
     Dates: start: 20110203, end: 20110301
  11. TRIAMTERENE AND HYDROCHLOROTHIAZIDE [Concomitant]
     Route: 065
  12. LEVOPHED [Concomitant]
     Route: 065
     Dates: start: 20110301
  13. METFORMIN HCL [Concomitant]
     Route: 065
  14. VANCOMYCIN [Concomitant]
     Route: 065
     Dates: start: 20110301
  15. EPINEPHRINE [Concomitant]
     Dosage: 1 AMP
     Route: 065
     Dates: start: 20110301
  16. VASOPRESSIN [Concomitant]
     Dosage: 40 UNITS
     Route: 041
     Dates: start: 20110301
  17. OXYGEN [Concomitant]
     Route: 065
     Dates: start: 20110301

REACTIONS (1)
  - SEPSIS [None]
